FAERS Safety Report 7478975-6 (Version None)
Quarter: 2011Q2

REPORT INFORMATION
  Report Type: 
  Country: None (occurrence: None)
  Receive Date: 20110513
  Receipt Date: 20110504
  Transmission Date: 20111010
  Serious: Yes (Hospitalization)
  Sender: FDA-Public Use
  Company Number: PHHO2011US06031

PATIENT
  Sex: Female

DRUGS (8)
  1. DICLOFENAC SODIUM [Suspect]
  2. NITRATES [Concomitant]
  3. ONGLYZA [Suspect]
  4. ACTOS [Suspect]
  5. NOVOLOG [Suspect]
  6. RANEXA [Suspect]
  7. LANTUS [Suspect]
  8. ASPIRIN [Concomitant]

REACTIONS (5)
  - ABDOMINAL PAIN [None]
  - CHEST PAIN [None]
  - HYPERHIDROSIS [None]
  - RENAL FAILURE ACUTE [None]
  - NON-CARDIAC CHEST PAIN [None]
